FAERS Safety Report 21454936 (Version 1)
Quarter: 2022Q4

REPORT INFORMATION
  Report Type: Spontaneous
  Country: US (occurrence: US)
  Receive Date: 20221014
  Receipt Date: 20221014
  Transmission Date: 20230113
  Serious: No
  Sender: FDA-Public Use
  Company Number: US-009507513-2209USA005562

PATIENT
  Age: 35 Year
  Sex: Female

DRUGS (1)
  1. INVANZ [Suspect]
     Active Substance: ERTAPENEM SODIUM
     Indication: Bacterial infection
     Dosage: DAILY VIA A PERIPHERALLY INSERTED CENTRAL CATHETER (PICC) LINE FOR 4 WEEKS
     Route: 042

REACTIONS (1)
  - Product use in unapproved indication [Unknown]
